FAERS Safety Report 14196132 (Version 1)
Quarter: 2017Q4

REPORT INFORMATION
  Report Type: Spontaneous
  Country: ZA (occurrence: ZA)
  Receive Date: 20171116
  Receipt Date: 20171116
  Transmission Date: 20180321
  Serious: Yes (Death, Other)
  Sender: FDA-Public Use
  Company Number: ZA-MYLANLABS-2017M1072868

PATIENT
  Age: 29 Year
  Sex: Female

DRUGS (5)
  1. OMEPRAZOLE SANDOZ [Suspect]
     Active Substance: OMEPRAZOLE
     Indication: ULCER
     Dosage: 20 MG, UNK
     Route: 048
     Dates: end: 20171106
  2. ULTIMAG [Suspect]
     Active Substance: MAGNESIUM CHLORIDE\ZINC OXIDE
     Indication: PRODUCT USED FOR UNKNOWN INDICATION
     Dosage: UNK
     Route: 048
     Dates: end: 20171106
  3. CALCIFEROL [Suspect]
     Active Substance: ERGOCALCIFEROL
     Indication: PRODUCT USED FOR UNKNOWN INDICATION
     Dosage: 50000 IU, UNK
     Route: 048
     Dates: end: 20171106
  4. ARYCOR [Suspect]
     Active Substance: AMIODARONE HYDROCHLORIDE
     Indication: CARDIAC DISORDER
     Dosage: 100 MG, UNK
     Route: 048
     Dates: end: 20171106
  5. FUROSEMIDE MYLAN [Suspect]
     Active Substance: FUROSEMIDE
     Indication: DIURETIC THERAPY
     Dosage: 40 MG, UNK
     Route: 048
     Dates: end: 20171106

REACTIONS (1)
  - Death [Fatal]
